FAERS Safety Report 22159942 (Version 1)
Quarter: 2023Q1

REPORT INFORMATION
  Report Type: Spontaneous
  Country: US (occurrence: None)
  Receive Date: 20230331
  Receipt Date: 20230331
  Transmission Date: 20230417
  Serious: Yes (Other)
  Sender: FDA-Public Use
  Company Number: US-ROCHE-3318336

PATIENT

DRUGS (1)
  1. ALECENSA [Suspect]
     Active Substance: ALECTINIB HYDROCHLORIDE
     Indication: Non-small cell lung cancer
     Dosage: ONGOING: UNKNOWN
     Route: 065

REACTIONS (4)
  - Disease progression [Unknown]
  - Pericardial effusion [Unknown]
  - Pleural effusion [Unknown]
  - Ill-defined disorder [Unknown]
